FAERS Safety Report 13298809 (Version 3)
Quarter: 2017Q1

REPORT INFORMATION
  Report Type: Spontaneous
  Country: BR (occurrence: BR)
  Receive Date: 20170306
  Receipt Date: 20170323
  Transmission Date: 20170428
  Serious: Yes (Hospitalization, Other)
  Sender: FDA-Public Use
  Company Number: BR-PFIZER INC-2017089788

PATIENT
  Age: 52 Year
  Sex: Male

DRUGS (10)
  1. HEMOFOL [Concomitant]
     Dosage: 1 DF, 1X/DAY
     Route: 058
     Dates: start: 20170206, end: 20170213
  2. EUTHYROX [Concomitant]
     Active Substance: LEVOTHYROXINE SODIUM
     Dosage: 75 UG, UNK
  3. NOVALGINA [Concomitant]
     Active Substance: METAMIZOLE SODIUM
     Dosage: 6 G, 1X/DAY
     Route: 048
     Dates: start: 20170206, end: 20170212
  4. CRESTOR [Suspect]
     Active Substance: ROSUVASTATIN CALCIUM
     Dosage: 10 MG, UNK
     Route: 048
  5. OXYCONTIN [Concomitant]
     Active Substance: OXYCODONE HYDROCHLORIDE
     Dosage: 20 MG, 1X/DAY
     Route: 048
     Dates: start: 20170206, end: 20170212
  6. MUVINLAX [Concomitant]
     Active Substance: ELECTROLYTES NOS\POLYETHYLENE GLYCOL 3350
     Dosage: 28 G, 1X/DAY
     Route: 048
     Dates: start: 20170206, end: 20170213
  7. OSCAL D [Concomitant]
     Active Substance: CALCIUM CARBONATE\CHOLECALCIFEROL
     Dosage: 500 MG, 1X/DAY
     Route: 048
     Dates: start: 20170206, end: 20170212
  8. SEROQUEL [Suspect]
     Active Substance: QUETIAPINE FUMARATE
     Dosage: 25 MG, UNK
     Route: 048
     Dates: start: 20170206, end: 20170213
  9. FORTAZ [Concomitant]
     Active Substance: CEFTAZIDIME SODIUM
     Dosage: 3 G, UNK
     Route: 042
     Dates: start: 20170206, end: 20170213
  10. ATENOLOL. [Suspect]
     Active Substance: ATENOLOL
     Dosage: 25 MG, UNK
     Route: 048

REACTIONS (5)
  - Agitation [Recovered/Resolved]
  - Metastases to liver [Unknown]
  - Adenocarcinoma gastric [Not Recovered/Not Resolved]
  - Pyrexia [Recovered/Resolved]
  - General physical health deterioration [Recovered/Resolved]

NARRATIVE: CASE EVENT DATE: 201611
